FAERS Safety Report 4309174-4 (Version None)
Quarter: 2004Q1

REPORT INFORMATION
  Report Type: 
  Country: None (occurrence: None)
  Receive Date: 20040301
  Receipt Date: 20040223
  Transmission Date: 20041129
  Serious: Yes (Hospitalization)
  Sender: FDA-Public Use
  Company Number: 200402522

PATIENT
  Age: 35 Year
  Sex: Female

DRUGS (2)
  1. ACETAMINOPHEN [Suspect]
     Dosage: 20 G ONCE PO
     Route: 048
  2. DEXTROPROPOXYPHENE [Suspect]
     Dosage: 1.5 G ONCE PO
     Route: 048

REACTIONS (7)
  - ALANINE AMINOTRANSFERASE INCREASED [None]
  - ASPARTATE AMINOTRANSFERASE INCREASED [None]
  - DRUG LEVEL ABOVE THERAPEUTIC [None]
  - MEDICATION ERROR [None]
  - NAUSEA [None]
  - PROTHROMBIN LEVEL INCREASED [None]
  - SOMNOLENCE [None]
